FAERS Safety Report 11980508 (Version 1)
Quarter: 2016Q1

REPORT INFORMATION
  Report Type: Spontaneous
  Country: None (occurrence: DE)
  Receive Date: 20160129
  Receipt Date: 20160129
  Transmission Date: 20160526
  Serious: No
  Sender: FDA-Public Use
  Company Number: DE-MEDAC PHARMA, INC.-1047109

PATIENT
  Sex: Male

DRUGS (1)
  1. METHOTREXATE [Suspect]
     Active Substance: METHOTREXATE
     Indication: RHEUMATOID ARTHRITIS

REACTIONS (7)
  - Blood iron decreased [None]
  - Vasculitis [Not Recovered/Not Resolved]
  - Drug resistance [None]
  - Episcleritis [Not Recovered/Not Resolved]
  - Polyneuropathy [Not Recovered/Not Resolved]
  - Pleural effusion [Not Recovered/Not Resolved]
  - Serositis [Not Recovered/Not Resolved]
